FAERS Safety Report 20806655 (Version 5)
Quarter: 2022Q2

REPORT INFORMATION
  Report Type: Spontaneous
  Country: US (occurrence: US)
  Receive Date: 20220510
  Receipt Date: 20220616
  Transmission Date: 20220720
  Serious: Yes (Other)
  Sender: FDA-Public Use
  Company Number: US-GLAXOSMITHKLINE-US2022AMR075665

PATIENT

DRUGS (1)
  1. ZEJULA [Suspect]
     Active Substance: NIRAPARIB
     Indication: Fallopian tube cancer
     Dosage: 200 MG, QD
     Route: 048
     Dates: end: 202206

REACTIONS (5)
  - Malignant neoplasm progression [Unknown]
  - Headache [Not Recovered/Not Resolved]
  - Blood potassium increased [Recovered/Resolved]
  - Fatigue [Unknown]
  - Middle insomnia [Unknown]
